FAERS Safety Report 5032428-3 (Version None)
Quarter: 2006Q2

REPORT INFORMATION
  Report Type: 
  Country: None (occurrence: None)
  Receive Date: 20060621
  Receipt Date: 20060621
  Transmission Date: 20061013
  Serious: Yes (Life-Threatening, Hospitalization, Disabling)
  Sender: FDA-Public Use
  Company Number: None

PATIENT
  Age: 73 Year
  Sex: Female
  Weight: 63.5036 kg

DRUGS (2)
  1. REMICADE [Suspect]
     Indication: RHEUMATOID ARTHRITIS
     Dosage: 3 DOSES 2 IN MAY      IV
     Route: 042
     Dates: start: 20050503, end: 20050609
  2. REMICADE [Suspect]
     Indication: RHEUMATOID ARTHRITIS
     Dosage: 3 DOSES 2 IN MAY      IV
     Route: 042
     Dates: start: 20050517, end: 20050609

REACTIONS (6)
  - CHILLS [None]
  - CONDITION AGGRAVATED [None]
  - DYSPNOEA [None]
  - HYPERTENSION [None]
  - PULMONARY FIBROSIS [None]
  - PYREXIA [None]
